FAERS Safety Report 9511003 (Version 1)
Quarter: 2013Q3

REPORT INFORMATION
  Report Type: Spontaneous
  Country: US (occurrence: None)
  Receive Date: 20130905
  Receipt Date: 20130905
  Transmission Date: 20140515
  Serious: Yes (Hospitalization)
  Sender: FDA-Public Use
  Company Number: 2013US001066

PATIENT
  Age: 47 Year
  Sex: Male

DRUGS (1)
  1. PONATINIB (AP24534) TABLET [Suspect]
     Indication: ACUTE LYMPHOCYTIC LEUKAEMIA
     Route: 048

REACTIONS (7)
  - Pulmonary embolism [None]
  - Pyrexia [None]
  - Deep vein thrombosis [None]
  - Pain [None]
  - Blood pressure increased [None]
  - Tachycardia [None]
  - Oedema peripheral [None]
